FAERS Safety Report 6077741-6 (Version None)
Quarter: 2009Q1

REPORT INFORMATION
  Report Type: 
  Country: None (occurrence: None)
  Receive Date: 20090211
  Receipt Date: 20090129
  Transmission Date: 20090719
  Serious: Yes (Other)
  Sender: FDA-Public Use
  Company Number: LTI2009A00029

PATIENT
  Age: 73 Year
  Sex: Male

DRUGS (5)
  1. COMPETACT (PIOGLITAZONE HYDROCHLORIDE, METFORMIN HYDROCHLORIDE) [Suspect]
     Indication: TYPE 2 DIABETES MELLITUS
     Dosage: 2 TAB. (1 TAB., 2 IN 1 D)
     Route: 048
     Dates: start: 20080301, end: 20090111
  2. GLUCOPHAGE [Concomitant]
  3. PRAXILENE (NAFTIDROFURYL OXALATE) [Concomitant]
  4. KARDEGIC (ACETYLSALICYLATE LYSINE) [Concomitant]
  5. LYRICA [Concomitant]

REACTIONS (2)
  - MALAISE [None]
  - PRESYNCOPE [None]
